FAERS Safety Report 4917174-6 (Version None)
Quarter: 2006Q1

REPORT INFORMATION
  Report Type: 
  Country: None (occurrence: None)
  Receive Date: 20060221
  Receipt Date: 20060215
  Transmission Date: 20060701
  Serious: Yes (Life-Threatening, Other)
  Sender: FDA-Public Use
  Company Number: GB-AVENTIS-200611381GDDC

PATIENT
  Age: 8 Year
  Sex: Male

DRUGS (1)
  1. DESMOSPRAY [Suspect]
     Indication: ENURESIS
     Dosage: DOSE: UNK
     Route: 045
     Dates: start: 20060124

REACTIONS (3)
  - CONVULSION [None]
  - HYPONATRAEMIA [None]
  - SYNCOPE [None]
